FAERS Safety Report 21059583 (Version 1)
Quarter: 2022Q3

REPORT INFORMATION
  Report Type: Spontaneous
  Country: US (occurrence: US)
  Receive Date: 20220708
  Receipt Date: 20220708
  Transmission Date: 20221026
  Serious: No
  Sender: FDA-Public Use
  Company Number: US-PFIZER INC-202200931423

PATIENT
  Age: 68 Year
  Sex: Male
  Weight: 77.11 kg

DRUGS (2)
  1. DISOPYRAMIDE PHOSPHATE [Suspect]
     Active Substance: DISOPYRAMIDE PHOSPHATE
     Indication: Arrhythmia
     Dosage: 100 MG, 3X/DAY
     Route: 048
     Dates: start: 20220701
  2. MULTAQ [Concomitant]
     Active Substance: DRONEDARONE
     Indication: Arrhythmia
     Dosage: UNK
     Dates: end: 2022

REACTIONS (2)
  - Dyspepsia [Unknown]
  - Discomfort [Unknown]

NARRATIVE: CASE EVENT DATE: 20220701
